FAERS Safety Report 8168495-8 (Version None)
Quarter: 2012Q1

REPORT INFORMATION
  Report Type: 
  Country: None (occurrence: None)
  Receive Date: 20120227
  Receipt Date: 20120227
  Transmission Date: 20120608
  Serious: Yes (Hospitalization)
  Sender: FDA-Public Use
  Company Number: None

PATIENT
  Age: 9 Year
  Sex: Male
  Weight: 24 kg

DRUGS (7)
  1. LUPRON DEPOT-PED [Suspect]
     Indication: PRECOCIOUS PUBERTY
     Dosage: 30 MG
     Route: 030
     Dates: start: 20111222, end: 20120103
  2. POLYETHYLENE GLYCOL [Concomitant]
     Route: 048
  3. METHYLPHENIDATE [Concomitant]
     Route: 048
  4. SERTRALINE HYDROCHLORIDE [Concomitant]
     Route: 048
  5. CLONIDINE [Concomitant]
     Route: 048
  6. NAPROXEN [Concomitant]
     Route: 048
  7. HYDROCODONE/ACETAMINOPHEN 7.5-500 MG/15 ML [Concomitant]
     Route: 048

REACTIONS (2)
  - ABSCESS STERILE [None]
  - INJECTION SITE ABSCESS [None]
